FAERS Safety Report 8235849-0 (Version None)
Quarter: 2012Q1

REPORT INFORMATION
  Report Type: 
  Country: None (occurrence: None)
  Receive Date: 20120326
  Receipt Date: 20120315
  Transmission Date: 20120608
  Serious: Yes (Other)
  Sender: FDA-Public Use
  Company Number: US-ASTRAZENECA-2012SE17785

PATIENT
  Sex: Male

DRUGS (1)
  1. BRILINTA [Suspect]
     Indication: CORONARY ARTERY BYPASS
     Route: 048

REACTIONS (3)
  - ADVERSE EVENT [None]
  - TRANSIENT ISCHAEMIC ATTACK [None]
  - DRUG PRESCRIBING ERROR [None]
